FAERS Safety Report 9181083 (Version 2)
Quarter: 2013Q1

REPORT INFORMATION
  Report Type: Spontaneous
  Country: US (occurrence: US)
  Receive Date: 20130322
  Receipt Date: 20130322
  Transmission Date: 20140127
  Serious: No
  Sender: FDA-Public Use
  Company Number: US-MYLANLABS-2012S1003097

PATIENT
  Sex: Female

DRUGS (11)
  1. EMSAM [Suspect]
     Indication: DEPRESSION
     Dosage: QD
     Route: 062
     Dates: start: 201110
  2. ACARBOSE [Concomitant]
     Indication: HYPOGLYCAEMIA
     Route: 048
  3. ARMOUR THYROID [Concomitant]
     Indication: AUTOIMMUNE THYROIDITIS
     Route: 048
  4. HORMONE THERAPY [Concomitant]
     Route: 061
  5. KLONOPIN [Concomitant]
     Indication: ANXIETY
     Route: 048
  6. DOCUSATE SODIUM [Concomitant]
     Indication: CONSTIPATION
     Route: 048
  7. LYRICA [Concomitant]
     Indication: FIBROMYALGIA
     Route: 048
  8. PANTOPRAZOLE [Concomitant]
     Indication: GASTRITIS
     Route: 048
  9. SENNA [Concomitant]
     Indication: CONSTIPATION
     Route: 048
  10. SEROQUEL [Concomitant]
     Indication: PSYCHOTIC DISORDER
     Route: 048
  11. TEMAZEPAM [Concomitant]
     Indication: INSOMNIA
     Route: 048

REACTIONS (5)
  - Tongue ulceration [Not Recovered/Not Resolved]
  - Glossodynia [Not Recovered/Not Resolved]
  - Aphagia [Not Recovered/Not Resolved]
  - Weight decreased [Not Recovered/Not Resolved]
  - Drug ineffective [None]
